FAERS Safety Report 4417009-4 (Version None)
Quarter: 2004Q2

REPORT INFORMATION
  Report Type: 
  Country: None (occurrence: None)
  Receive Date: 20040629
  Receipt Date: 20030610
  Transmission Date: 20050107
  Serious: Yes (Other)
  Sender: FDA-Public Use
  Company Number: 2003US005394

PATIENT
  Age: 64 Year
  Sex: Female

DRUGS (1)
  1. ADENOSCAN [Suspect]
     Indication: SCAN MYOCARDIAL PERFUSION
     Dosage: 15.03 MG TOTAL DOSE, INTRAVENOUS
     Route: 042
     Dates: start: 20030609, end: 20030609

REACTIONS (1)
  - DYSPNOEA [None]
